FAERS Safety Report 5084974-4 (Version None)
Quarter: 2006Q3

REPORT INFORMATION
  Report Type: 
  Country: None (occurrence: None)
  Receive Date: 20060815
  Receipt Date: 20060801
  Transmission Date: 20061208
  Serious: Yes (Hospitalization)
  Sender: FDA-Public Use
  Company Number: WAES 0608USA00325

PATIENT
  Age: 50 Year
  Sex: Male

DRUGS (5)
  1. DECADRON [Suspect]
     Dosage: 20 MG PO
     Route: 048
  2. PACLITAXEL [Suspect]
     Indication: METASTATIC MALIGNANT MELANOMA
     Dosage: IV
     Route: 042
     Dates: start: 20060215, end: 20060215
  3. CARBOPLATIN [Suspect]
     Indication: METASTATIC MALIGNANT MELANOMA
     Dosage: IV
     Route: 042
     Dates: start: 20060215, end: 20060215
  4. BLINDED THERAPY [Suspect]
     Indication: METASTATIC MALIGNANT MELANOMA
     Dosage: PO
     Route: 048
     Dates: start: 20060216, end: 20060305
  5. COUMADIN [Concomitant]

REACTIONS (8)
  - ALANINE AMINOTRANSFERASE INCREASED [None]
  - BLOOD ALKALINE PHOSPHATASE INCREASED [None]
  - BLOOD CALCIUM INCREASED [None]
  - BLOOD SODIUM DECREASED [None]
  - BLOOD UREA INCREASED [None]
  - DIABETES MELLITUS NON-INSULIN-DEPENDENT [None]
  - HYPERGLYCAEMIA [None]
  - LIPASE INCREASED [None]
